FAERS Safety Report 25615701 (Version 1)
Quarter: 2025Q3

REPORT INFORMATION
  Report Type: Other
  Country: CN (occurrence: CN)
  Receive Date: 20250729
  Receipt Date: 20250729
  Transmission Date: 20251021
  Serious: Yes (Hospitalization, Other)
  Sender: COREPHARMA LLC
  Company Number: CN-CorePharma LLC-2181404

PATIENT
  Age: 61 Year
  Sex: Male

DRUGS (5)
  1. DEXAMETHASONE [Suspect]
     Active Substance: DEXAMETHASONE
     Indication: Mantle cell lymphoma
  2. CYCLOPHOSPHAMIDE [Suspect]
     Active Substance: CYCLOPHOSPHAMIDE
  3. VINDESINE [Suspect]
     Active Substance: VINDESINE
  4. RITUXIMAB [Suspect]
     Active Substance: RITUXIMAB
  5. EPIRUBICIN HYDROCHLORIDE [Suspect]
     Active Substance: EPIRUBICIN HYDROCHLORIDE

REACTIONS (2)
  - Pneumonia pneumococcal [Recovering/Resolving]
  - Whipple^s disease [Recovering/Resolving]
